FAERS Safety Report 8680526 (Version 3)
Quarter: 2013Q2

REPORT INFORMATION
  Report Type: Spontaneous
  Country: JP (occurrence: JP)
  Receive Date: 20120724
  Receipt Date: 20130613
  Transmission Date: 20140414
  Serious: Yes (Death, Other)
  Sender: FDA-Public Use
  Company Number: JP-ROCHE-1090905

PATIENT
  Age: 66 Year
  Sex: Female

DRUGS (19)
  1. RITUXIMAB [Suspect]
     Indication: DIFFUSE LARGE B-CELL LYMPHOMA
     Route: 042
     Dates: start: 20081128
  2. RITUXIMAB [Suspect]
     Route: 042
     Dates: start: 20090106
  3. RITUXIMAB [Suspect]
     Route: 042
     Dates: start: 20090126
  4. RITUXIMAB [Suspect]
     Route: 042
     Dates: start: 20090316
  5. RITUXIMAB [Suspect]
     Route: 042
     Dates: start: 20090406
  6. RITUXIMAB [Suspect]
     Route: 042
     Dates: start: 20090427
  7. RITUXIMAB [Suspect]
     Route: 042
     Dates: start: 20090518
  8. RITUXIMAB [Suspect]
     Route: 042
     Dates: start: 20090608, end: 20090608
  9. CYCLOPHOSPHAMIDE [Concomitant]
     Indication: DIFFUSE LARGE B-CELL LYMPHOMA
     Dosage: 890 MGX1
     Route: 065
     Dates: start: 20081204, end: 20090126
  10. CYCLOPHOSPHAMIDE [Concomitant]
     Dosage: 660 MG2,
     Route: 065
     Dates: start: 20090126
  11. DOXORUBICIN HYDROCHLORIDE [Concomitant]
     Indication: DIFFUSE LARGE B-CELL LYMPHOMA
     Dosage: 55 MG X1, 40 MG X2,
     Route: 065
     Dates: start: 20081204, end: 20090126
  12. VINCRISTINE SULFATE [Concomitant]
     Indication: DIFFUSE LARGE B-CELL LYMPHOMA
     Dosage: 1.6 MG X3,
     Route: 065
     Dates: start: 20081204, end: 20090126
  13. PREDNISOLONE [Concomitant]
     Indication: DIFFUSE LARGE B-CELL LYMPHOMA
     Route: 065
     Dates: start: 20081204, end: 20090127
  14. PRIMOBOLAN [Concomitant]
     Indication: ANAEMIA
     Route: 048
     Dates: start: 20090914, end: 20111012
  15. URSO [Concomitant]
     Indication: BILIARY CIRRHOSIS PRIMARY
     Route: 048
     Dates: start: 2004, end: 20111012
  16. BEZATOL [Concomitant]
     Indication: BILIARY CIRRHOSIS PRIMARY
     Route: 048
     Dates: start: 2008, end: 20111012
  17. PARIET [Concomitant]
     Indication: ANTACID THERAPY
     Route: 048
     Dates: start: 20081124, end: 20111002
  18. ALDACTONE [Concomitant]
     Indication: ASCITES
     Route: 048
     Dates: start: 20110517, end: 20111011
  19. LASIX [Concomitant]
     Indication: ASCITES
     Route: 048
     Dates: start: 20110523, end: 20111011

REACTIONS (2)
  - Bile duct cancer [Fatal]
  - Hepatic fibrosis [Not Recovered/Not Resolved]
